FAERS Safety Report 12534029 (Version 1)
Quarter: 2016Q3

REPORT INFORMATION
  Report Type: Spontaneous
  Country: US (occurrence: US)
  Receive Date: 20160706
  Receipt Date: 20160706
  Transmission Date: 20161109
  Serious: No
  Sender: FDA-Public Use
  Company Number: US-PURDUE-USA-2016-0129984

PATIENT
  Sex: Female

DRUGS (3)
  1. PERCOCET                           /00446701/ [Concomitant]
     Active Substance: ACETAMINOPHEN\OXYCODONE HYDROCHLORIDE\OXYCODONE TEREPHTHALATE
     Indication: BREAKTHROUGH PAIN
     Dosage: 2 DF (5/325), TID PRN
     Route: 048
     Dates: start: 201602
  2. BUTRANS [Suspect]
     Active Substance: BUPRENORPHINE
     Indication: PAIN
     Dosage: 7.5 MCG/HR, WEEKLY
     Route: 062
     Dates: start: 20160315
  3. BUTRANS [Suspect]
     Active Substance: BUPRENORPHINE
     Dosage: 1/2 20 MCG/HR PATCH, WEEKLY
     Route: 062
     Dates: start: 201602, end: 201602

REACTIONS (8)
  - Wrong technique in product usage process [Unknown]
  - Lethargy [Recovered/Resolved]
  - Discomfort [Unknown]
  - Rash [Recovered/Resolved]
  - Inadequate analgesia [Unknown]
  - Pain [Recovered/Resolved]
  - Pruritus [Recovered/Resolved]
  - Drug withdrawal syndrome [Unknown]

NARRATIVE: CASE EVENT DATE: 201602
